FAERS Safety Report 4769930-5 (Version None)
Quarter: 2005Q3

REPORT INFORMATION
  Report Type: 
  Country: None (occurrence: None)
  Receive Date: 20050914
  Receipt Date: 20050901
  Transmission Date: 20060218
  Serious: Yes (Hospitalization, Other)
  Sender: FDA-Public Use
  Company Number: HQWYE212010FEB05

PATIENT
  Age: 17 Year
  Sex: Male

DRUGS (7)
  1. PANTOPRAZOLE SODIUM [Suspect]
     Indication: ABDOMINAL PAIN UPPER
     Dosage: 40 MG 1X PER 1 DAY, ORAL
     Route: 048
     Dates: start: 20041102, end: 20041104
  2. PANTOPRAZOLE SODIUM [Suspect]
     Indication: DYSPEPSIA
     Dosage: 40 MG 1X PER 1 DAY, ORAL
     Route: 048
     Dates: start: 20041102, end: 20041104
  3. PANTOPRAZOLE SODIUM [Suspect]
     Indication: GASTRITIS VIRAL
     Dosage: 40 MG 1X PER 1 DAY, ORAL
     Route: 048
     Dates: start: 20041102, end: 20041104
  4. PANTOPRAZOLE SODIUM [Suspect]
     Indication: NAUSEA
     Dosage: 40 MG 1X PER 1 DAY, ORAL
     Route: 048
     Dates: start: 20041102, end: 20041104
  5. CANTABILINE (HYMERCROMONE) [Concomitant]
  6. PERIDYS (DOMPERIDONE) [Concomitant]
  7. PROPOFAN (CAFFEINE/CARBASALATE CALCIUM/CHLORPHENAMINE MALEATE/DEXTROPR [Concomitant]

REACTIONS (10)
  - BACK PAIN [None]
  - BLADDER PAIN [None]
  - DRUG INEFFECTIVE FOR UNAPPROVED INDICATION [None]
  - DYSURIA [None]
  - NEPHRITIS INTERSTITIAL [None]
  - NOCTURIA [None]
  - POLLAKIURIA [None]
  - POLYDIPSIA [None]
  - POLYURIA [None]
  - RENAL FAILURE ACUTE [None]
